FAERS Safety Report 5767054-1 (Version None)
Quarter: 2008Q2

REPORT INFORMATION
  Report Type: 
  Country: None (occurrence: None)
  Receive Date: 20080612
  Receipt Date: 20080611
  Transmission Date: 20081010
  Serious: Yes (Other)
  Sender: FDA-Public Use
  Company Number: A0732346A

PATIENT
  Sex: Female

DRUGS (2)
  1. ALLI [Suspect]
     Indication: DRUG USE FOR UNKNOWN INDICATION
  2. UNSPECIFIED MEDICATION [Suspect]

REACTIONS (8)
  - ANAEMIA [None]
  - ARTHROPATHY [None]
  - ASTHENIA [None]
  - DYSSTASIA [None]
  - FATIGUE [None]
  - FIBROMYALGIA [None]
  - LETHARGY [None]
  - MULTIPLE MYELOMA [None]
